FAERS Safety Report 21611172 (Version 1)
Quarter: 2022Q4

REPORT INFORMATION
  Report Type: Spontaneous
  Country: US (occurrence: US)
  Receive Date: 20221117
  Receipt Date: 20221117
  Transmission Date: 20230113
  Serious: No
  Sender: FDA-Public Use
  Company Number: US-SA-SAC20221114001168

PATIENT
  Sex: Male

DRUGS (11)
  1. DUPIXENT [Suspect]
     Active Substance: DUPILUMAB
     Indication: Dermatitis atopic
     Dosage: 300 MG, QOW
     Route: 058
  2. AMLODIPINE [Concomitant]
     Active Substance: AMLODIPINE BESYLATE
  3. FAMOTIDINE [Concomitant]
     Active Substance: FAMOTIDINE
  4. FINASTERIDE [Concomitant]
     Active Substance: FINASTERIDE
  5. FLUTICASONE [Concomitant]
     Active Substance: FLUTICASONE
  6. METOPROLOL [Concomitant]
     Active Substance: METOPROLOL
  7. PRAVASTATIN [Concomitant]
     Active Substance: PRAVASTATIN
  8. ZOLPIDEM [Concomitant]
     Active Substance: ZOLPIDEM TARTRATE
  9. SARNA [CAMPHOR;MENTHOL] [Concomitant]
  10. TAMSULOSIN HYDROCHLORIDE [Concomitant]
     Active Substance: TAMSULOSIN HYDROCHLORIDE
  11. TRIAMCINOLONE [Concomitant]
     Active Substance: TRIAMCINOLONE

REACTIONS (1)
  - Rash [Recovering/Resolving]
